FAERS Safety Report 11462731 (Version 1)
Quarter: 2015Q3

REPORT INFORMATION
  Report Type: Spontaneous
  Country: US (occurrence: US)
  Receive Date: 20150831
  Receipt Date: 20150831
  Transmission Date: 20151125
  Serious: No
  Sender: FDA-Public Use
  Company Number: US-ELI_LILLY_AND_COMPANY-US201101002996

PATIENT
  Sex: Female

DRUGS (2)
  1. CYMBALTA [Suspect]
     Active Substance: DULOXETINE HYDROCHLORIDE
     Indication: MAJOR DEPRESSION
     Dosage: 120 MG, DAILY (1/D)
     Dates: start: 2004, end: 201012
  2. DEXTROAMPHETAMINE. [Concomitant]
     Active Substance: DEXTROAMPHETAMINE SULFATE
     Dosage: UNK, UNKNOWN

REACTIONS (10)
  - Dizziness [Not Recovered/Not Resolved]
  - Crying [Not Recovered/Not Resolved]
  - Drug withdrawal syndrome [Not Recovered/Not Resolved]
  - Nausea [Recovered/Resolved]
  - Hot flush [Unknown]
  - Asthenia [Not Recovered/Not Resolved]
  - Back pain [Recovered/Resolved]
  - Major depression [Not Recovered/Not Resolved]
  - Pain [Not Recovered/Not Resolved]
  - Anxiety [Not Recovered/Not Resolved]
